FAERS Safety Report 23572677 (Version 1)
Quarter: 2024Q1

REPORT INFORMATION
  Report Type: Spontaneous
  Country: US (occurrence: US)
  Receive Date: 20240227
  Receipt Date: 20240227
  Transmission Date: 20240409
  Serious: No
  Sender: FDA-Public Use
  Company Number: US-AVADEL CNS PHARMACEUTICALS, LLC-2023AVA00513

PATIENT
  Sex: Male
  Weight: 95.238 kg

DRUGS (13)
  1. LUMRYZ [Suspect]
     Active Substance: SODIUM OXYBATE
     Indication: Narcolepsy
     Dosage: 9 G, ONCE NIGHTLY AT BEDTIME ON AN EMPTY STOMACH
     Route: 048
     Dates: start: 20231117, end: 20231205
  2. LUMRYZ [Suspect]
     Active Substance: SODIUM OXYBATE
     Indication: Cataplexy
  3. LUMRYZ [Suspect]
     Active Substance: SODIUM OXYBATE
     Indication: Somnolence
  4. LISDEXAMFETAMINE DIMESYLATE [Concomitant]
     Active Substance: LISDEXAMFETAMINE DIMESYLATE
  5. CAFFEINE [Concomitant]
     Active Substance: CAFFEINE
  6. NUVIGIL [Concomitant]
     Active Substance: ARMODAFINIL
  7. TESTOSTERONE [Concomitant]
     Active Substance: TESTOSTERONE
  8. VITAMIN D2 [Concomitant]
     Active Substance: ERGOCALCIFEROL
  9. VITAMINS NOS [Concomitant]
     Active Substance: VITAMINS
  10. ASPIRIN [Concomitant]
     Active Substance: ASPIRIN
  11. VYVANSE [Concomitant]
     Active Substance: LISDEXAMFETAMINE DIMESYLATE
  12. XYREM [Concomitant]
     Active Substance: SODIUM OXYBATE
  13. ARMODAFINIL [Concomitant]
     Active Substance: ARMODAFINIL

REACTIONS (5)
  - Illness [Unknown]
  - Initial insomnia [Unknown]
  - Middle insomnia [Unknown]
  - Vomiting [Unknown]
  - Drug ineffective [Recovered/Resolved]

NARRATIVE: CASE EVENT DATE: 20230101
